FAERS Safety Report 11272967 (Version 4)
Quarter: 2015Q4

REPORT INFORMATION
  Report Type: Spontaneous
  Country: US (occurrence: US)
  Receive Date: 20150715
  Receipt Date: 20151002
  Transmission Date: 20160304
  Serious: No
  Sender: FDA-Public Use
  Company Number: US-PFIZER INC-2015234966

PATIENT
  Age: 57 Year
  Sex: Male
  Weight: 82 kg

DRUGS (2)
  1. VIAGRA [Suspect]
     Active Substance: SILDENAFIL CITRATE
     Indication: ERECTILE DYSFUNCTION
     Dosage: 100 UNK, UNK
  2. VIAGRA [Suspect]
     Active Substance: SILDENAFIL CITRATE
     Indication: SEXUAL DYSFUNCTION
     Dosage: 50 MG, UNK
     Route: 048

REACTIONS (1)
  - Drug ineffective [Recovered/Resolved]
